FAERS Safety Report 22344220 (Version 2)
Quarter: 2024Q1

REPORT INFORMATION
  Report Type: Spontaneous
  Country: GB (occurrence: GB)
  Receive Date: 20230519
  Receipt Date: 20240328
  Transmission Date: 20240410
  Serious: Yes (Other)
  Sender: FDA-Public Use
  Company Number: GB-MHRA-MED-202304281632515170-DYCZT

PATIENT
  Age: 10 Month
  Sex: Male

DRUGS (1)
  1. BUPRENORPHINE [Suspect]
     Active Substance: BUPRENORPHINE
     Indication: Product used for unknown indication
     Dosage: 10MG 7DAY PATCH; ;
     Route: 065

REACTIONS (1)
  - Nausea [Not Recovered/Not Resolved]
